FAERS Safety Report 26134088 (Version 1)
Quarter: 2025Q4

REPORT INFORMATION
  Report Type: Spontaneous
  Country: AU (occurrence: AU)
  Receive Date: 20251209
  Receipt Date: 20251209
  Transmission Date: 20260117
  Serious: Yes (Other)
  Sender: RANBAXY
  Company Number: AU-SUN PHARMACEUTICAL INDUSTRIES LTD-2025RR-540779

PATIENT
  Age: 73 Year
  Sex: Male

DRUGS (1)
  1. OCTREOTIDE [Suspect]
     Active Substance: OCTREOTIDE
     Indication: Neuroendocrine tumour metastatic
     Dosage: UNK, MONTHLY
     Route: 065

REACTIONS (3)
  - Chronic kidney disease [Unknown]
  - Crystal nephropathy [Unknown]
  - Acute kidney injury [Unknown]
